FAERS Safety Report 4750871-4 (Version None)
Quarter: 2005Q3

REPORT INFORMATION
  Report Type: 
  Country: None (occurrence: None)
  Receive Date: 20050822
  Receipt Date: 20050812
  Transmission Date: 20060218
  Serious: Yes (Death)
  Sender: FDA-Public Use
  Company Number: OMPQ-PR-0508S-1192

PATIENT
  Age: 78 Year
  Sex: Male
  Weight: 90.4926 kg

DRUGS (12)
  1. OMNIPAQUE 300 [Suspect]
     Indication: ABDOMINAL MASS
     Dosage: 145 ML, SINGLE DOSE, I.V.
     Route: 042
     Dates: start: 20050310, end: 20050310
  2. OMNIPAQUE 300 [Suspect]
     Indication: INTESTINAL OBSTRUCTION
     Dosage: 145 ML, SINGLE DOSE, I.V.
     Route: 042
     Dates: start: 20050310, end: 20050310
  3. COUMADIN [Concomitant]
  4. ISOSORIBDE MONONITRATE (ISMO) [Concomitant]
  5. GUAIFENESIN [Concomitant]
  6. LASIX [Concomitant]
  7. MORPHINE [Concomitant]
  8. POLYSACCHARIDE-IRON COMPLEX (NIFEREX) [Concomitant]
  9. NORVASC [Concomitant]
  10. OXYCOCET (PERCOCET) [Concomitant]
  11. PREDNISONE TAB [Concomitant]
  12. SALBUTAMOL (PROVENTIL) [Concomitant]

REACTIONS (17)
  - BLOOD PRESSURE IMMEASURABLE [None]
  - CHRONIC OBSTRUCTIVE PULMONARY DISEASE [None]
  - CYANOSIS [None]
  - DYSPNOEA [None]
  - FEMORAL PULSE ABNORMAL [None]
  - HEART RATE DECREASED [None]
  - HYPOPNOEA [None]
  - MYDRIASIS [None]
  - NAUSEA [None]
  - PALLOR [None]
  - PULSE ABSENT [None]
  - RADIAL PULSE ABNORMAL [None]
  - RESPIRATORY DEPRESSION [None]
  - RESTLESSNESS [None]
  - SKIN DISCOLOURATION [None]
  - UNRESPONSIVE TO VERBAL STIMULI [None]
  - WHEEZING [None]
